FAERS Safety Report 21833869 (Version 1)
Quarter: 2023Q1

REPORT INFORMATION
  Report Type: Spontaneous
  Country: FR (occurrence: FR)
  Receive Date: 20230108
  Receipt Date: 20230108
  Transmission Date: 20230418
  Serious: Yes (Death, Life-Threatening, Hospitalization, Other)
  Sender: FDA-Public Use
  Company Number: FR-AFSSAPS-PC20221981

PATIENT
  Age: 93 Year
  Sex: Female

DRUGS (6)
  1. PANTOPRAZOLE SODIUM [Suspect]
     Active Substance: PANTOPRAZOLE SODIUM
     Indication: Product used for unknown indication
     Dosage: 40 MG(1 TABLET IN THE EVENING)
     Route: 048
     Dates: start: 20211007, end: 20211020
  2. TRAMADOL [Suspect]
     Active Substance: TRAMADOL
     Indication: Analgesic intervention supportive therapy
     Dosage: 50 MG (1 TABLET IN CASE OF PAIN)
     Route: 048
     Dates: start: 20211007, end: 20211020
  3. LOVENOX [Suspect]
     Active Substance: ENOXAPARIN SODIUM
     Indication: Analgesic intervention supportive therapy
     Dosage: UNK, ONCE A DAY
     Route: 030
     Dates: start: 20211007, end: 20211020
  4. CEFIXIME [Concomitant]
     Active Substance: CEFIXIME
     Indication: Antibiotic therapy
     Dosage: UNK
     Route: 048
     Dates: start: 20211013, end: 20211015
  5. KETOPROFEN [Suspect]
     Active Substance: KETOPROFEN
     Indication: Analgesic intervention supportive therapy
     Dosage: 1 CAPSULE 3 TIMES A DAY
     Route: 048
     Dates: start: 20211012, end: 20211018
  6. OFLOXACIN [Suspect]
     Active Substance: OFLOXACIN
     Indication: Antibiotic therapy
     Dosage: 200 MG(1CAPSULE TWICE A DAY)
     Route: 048
     Dates: start: 20211012, end: 20211013

REACTIONS (1)
  - Toxic epidermal necrolysis [Fatal]

NARRATIVE: CASE EVENT DATE: 20211013
